FAERS Safety Report 25768806 (Version 1)
Quarter: 2025Q3

REPORT INFORMATION
  Report Type: Spontaneous
  Country: US (occurrence: None)
  Receive Date: 20250905
  Receipt Date: 20250905
  Transmission Date: 20251020
  Serious: Yes (Hospitalization, Disabling)
  Sender: FDA-CTU
  Company Number: None

PATIENT
  Age: 48 Year
  Sex: Female
  Weight: 75.15 kg

DRUGS (5)
  1. DAXXIFY [Suspect]
     Active Substance: DAXIBOTULINUMTOXIN A-LANM
     Indication: Skin wrinkling
     Dates: start: 20241010, end: 20241011
  2. VITAMIN D NOS [Concomitant]
     Active Substance: CHOLECALCIFEROL\ERGOCALCIFEROL
  3. ESTRACE [Concomitant]
     Active Substance: ESTRADIOL
  4. LISINOPRIL [Concomitant]
     Active Substance: LISINOPRIL
  5. TOPROL XL [Concomitant]
     Active Substance: METOPROLOL SUCCINATE

REACTIONS (7)
  - Blood pressure increased [None]
  - Laboratory test abnormal [None]
  - Palpitations [None]
  - Heart rate irregular [None]
  - Dizziness [None]
  - Hypoaesthesia [None]
  - Hypoaesthesia [None]

NARRATIVE: CASE EVENT DATE: 20241010
